FAERS Safety Report 4590842-4 (Version None)
Quarter: 2005Q1

REPORT INFORMATION
  Report Type: 
  Country: None (occurrence: None)
  Receive Date: 20050225
  Receipt Date: 20050222
  Transmission Date: 20050727
  Serious: Yes (Other)
  Sender: FDA-Public Use
  Company Number: US-JNJFOC-20050204933

PATIENT
  Sex: Male

DRUGS (1)
  1. CONCERTA [Suspect]
     Indication: DYSKINESIA
     Route: 049
     Dates: start: 20050201

REACTIONS (3)
  - AGGRESSION [None]
  - AGITATION [None]
  - HALLUCINATION [None]
